FAERS Safety Report 5509971-3 (Version None)
Quarter: 2007Q4

REPORT INFORMATION
  Report Type: 
  Country: None (occurrence: None)
  Receive Date: 20071107
  Receipt Date: 20071107
  Transmission Date: 20080405
  Serious: Yes (Hospitalization)
  Sender: FDA-Public Use
  Company Number: None

PATIENT
  Sex: Female
  Weight: 43.5453 kg

DRUGS (8)
  1. MYFORTIC [Suspect]
     Indication: IMMUNOSUPPRESSION
     Dosage: 720 MG BID PO
     Route: 048
     Dates: start: 20070718
  2. RAPAMUNE [Suspect]
     Indication: IMMUNOSUPPRESSION
     Dosage: 3 MG DAILY PO
     Route: 048
     Dates: start: 20071026
  3. BACTRIM [Concomitant]
  4. LASIX [Concomitant]
  5. PROTONIX [Concomitant]
  6. MULTI-VITAMIN [Concomitant]
  7. ASPIRIN [Concomitant]
  8. NORVASC [Concomitant]

REACTIONS (2)
  - INFECTION [None]
  - TRANSPLANT REJECTION [None]
